FAERS Safety Report 15864817 (Version 1)
Quarter: 2019Q1

REPORT INFORMATION
  Report Type: Spontaneous
  Country: US (occurrence: US)
  Receive Date: 20190124
  Receipt Date: 20190124
  Transmission Date: 20190417
  Serious: No
  Sender: FDA-Public Use
  Company Number: US-COVIS PHARMA B.V.-2018COV03616

PATIENT
  Sex: Male

DRUGS (14)
  1. VITAMIN D3 [Concomitant]
     Active Substance: CHOLECALCIFEROL
  2. AMPYRA [Suspect]
     Active Substance: DALFAMPRIDINE
     Indication: MULTIPLE SCLEROSIS
     Dosage: 10 MG
     Route: 048
  3. MULTIVITAMIN [Concomitant]
     Active Substance: VITAMINS
  4. VITAMIN B [Concomitant]
     Active Substance: VITAMIN B
  5. VITAMIN A [Concomitant]
     Active Substance: VITAMIN A
  6. VITAMIN C [Concomitant]
     Active Substance: ASCORBIC ACID
  7. BUPROPION. [Concomitant]
     Active Substance: BUPROPION
  8. TIZANIDINE. [Suspect]
     Active Substance: TIZANIDINE
  9. GILENYA [Concomitant]
     Active Substance: FINGOLIMOD HYDROCHLORIDE
     Dates: end: 2015
  10. TRAZODONE HYDROCHLORIDE. [Concomitant]
     Active Substance: TRAZODONE HYDROCHLORIDE
  11. FISH OIL [Concomitant]
     Active Substance: FISH OIL
  12. OXYBUTIN [Concomitant]
     Active Substance: OXYBUTYNIN
  13. VITAMIN B COMPLEX [Concomitant]
     Active Substance: CYANOCOBALAMIN\DEXPANTHENOL\NIACINAMIDE\PYRIDOXINE HYDROCHLORIDE\RIBOFLAVIN 5^-PHOSPHATE SODIUM\THIAMINE HYDROCHLORIDE\VITAMIN B COMPLEX
  14. VITAMIN E [Concomitant]
     Active Substance: .ALPHA.-TOCOPHEROL

REACTIONS (7)
  - Visual impairment [Unknown]
  - Nerve injury [Unknown]
  - Memory impairment [Unknown]
  - Fatigue [Unknown]
  - Muscle spasms [Unknown]
  - Balance disorder [Unknown]
  - Hypoaesthesia [Unknown]
